FAERS Safety Report 22088920 (Version 1)
Quarter: 2023Q1

REPORT INFORMATION
  Report Type: Spontaneous
  Country: US (occurrence: US)
  Receive Date: 20230313
  Receipt Date: 20230313
  Transmission Date: 20230417
  Serious: No
  Sender: FDA-Public Use
  Company Number: US-BAYER-2023A030735

PATIENT
  Age: 79 Year
  Sex: Male

DRUGS (1)
  1. MIRALAX [Suspect]
     Active Substance: POLYETHYLENE GLYCOL 3350
     Indication: Gastrointestinal disorder
     Dosage: 5 OZ OF WATER WITH THE POWDER
     Route: 048
     Dates: end: 20230306

REACTIONS (2)
  - Drug ineffective [Unknown]
  - Extra dose administered [Unknown]
